FAERS Safety Report 10168465 (Version 7)
Quarter: 2015Q3

REPORT INFORMATION
  Report Type: Report from Study
  Country: CA (occurrence: CA)
  Receive Date: 20140513
  Receipt Date: 20150724
  Transmission Date: 20151125
  Serious: Yes (Other)
  Sender: FDA-Public Use
  Company Number: CA-ROCHE-1398327

PATIENT
  Sex: Female
  Weight: 69 kg

DRUGS (43)
  1. PREDNISONE. [Concomitant]
     Active Substance: PREDNISONE
     Dosage: ON AND OFF
     Route: 065
     Dates: start: 1971
  2. PLAVIX [Concomitant]
     Active Substance: CLOPIDOGREL BISULFATE
  3. KEFLEX [Concomitant]
     Active Substance: CEPHALEXIN
  4. BACTROBAN [Concomitant]
     Active Substance: MUPIROCIN\MUPIROCIN CALCIUM
     Route: 065
     Dates: start: 20140220
  5. VITAMIN B12 [Concomitant]
     Active Substance: CYANOCOBALAMIN
  6. AVAPRO [Concomitant]
     Active Substance: IRBESARTAN
  7. LYSINE [Concomitant]
     Active Substance: LYSINE
  8. LUTEIN [Concomitant]
     Active Substance: LUTEIN
  9. ACETAMINOPHEN. [Concomitant]
     Active Substance: ACETAMINOPHEN
     Indication: PREMEDICATION
     Route: 048
     Dates: start: 20140304
  10. BECONASE AQ [Concomitant]
     Active Substance: BECLOMETHASONE DIPROPIONATE MONOHYDRATE
  11. PARIET [Concomitant]
     Active Substance: RABEPRAZOLE SODIUM
     Route: 065
  12. N-ACETYL CYSTEINE [Concomitant]
  13. SEEBRI [Concomitant]
     Active Substance: GLYCOPYRRONIUM
     Dosage: INSTEAD OF SPIRIVA
     Route: 065
     Dates: start: 20140815
  14. VITAMIN B5 [Concomitant]
  15. VITAMIN D3 [Concomitant]
     Active Substance: CHOLECALCIFEROL
  16. LACTOFERRIN [Concomitant]
     Active Substance: LACTOFERRIN
  17. RITUXAN [Suspect]
     Active Substance: RITUXIMAB
     Indication: GRANULOMATOSIS WITH POLYANGIITIS
     Route: 042
     Dates: start: 20140304
  18. METHYLPREDNISOLONE. [Concomitant]
     Active Substance: METHYLPREDNISOLONE
     Indication: PREMEDICATION
     Route: 042
     Dates: start: 20140304
  19. BIOTIN [Concomitant]
     Active Substance: BIOTIN
  20. HYDROCORTISONE. [Concomitant]
     Active Substance: HYDROCORTISONE
  21. OXYGEN. [Concomitant]
     Active Substance: OXYGEN
     Dosage: USES DURING EXERTION AND WHILE SLEEPING
     Route: 065
  22. IMURAN [Concomitant]
     Active Substance: AZATHIOPRINE
     Route: 065
     Dates: start: 20140111
  23. CELEXA [Concomitant]
     Active Substance: CITALOPRAM HYDROBROMIDE
  24. FAMVIR (CANADA) [Concomitant]
  25. SALBUTAMOL [Concomitant]
     Active Substance: ALBUTEROL
  26. TIAZAC (CANADA) [Concomitant]
  27. FOSAVANCE [Concomitant]
     Active Substance: ALENDRONATE SODIUM\CHOLECALCIFEROL
  28. CIPRODEX (CANADA) [Concomitant]
  29. QUERCETIN [Concomitant]
     Active Substance: QUERCETIN
  30. VITAMIN C [Concomitant]
     Active Substance: ASCORBIC ACID
  31. ADVAIR HFA [Concomitant]
     Active Substance: FLUTICASONE PROPIONATE\SALMETEROL XINAFOATE
  32. XYLITOL [Concomitant]
     Active Substance: XYLITOL
  33. SOLU-MEDROL [Suspect]
     Active Substance: METHYLPREDNISOLONE SODIUM SUCCINATE
     Indication: PRODUCT USED FOR UNKNOWN INDICATION
     Route: 042
     Dates: start: 20140304
  34. LIPITOR [Concomitant]
     Active Substance: ATORVASTATIN CALCIUM
  35. DIFLUCAN [Concomitant]
     Active Substance: FLUCONAZOLE
  36. ATIVAN [Concomitant]
     Active Substance: LORAZEPAM
  37. FOLIC ACID. [Concomitant]
     Active Substance: FOLIC ACID
  38. PULMICORT NEBULIZER [Concomitant]
     Dosage: PULMICORT NEBULE RINSE
     Route: 065
  39. VITAMIN B6 [Concomitant]
     Active Substance: PYRIDOXINE HYDROCHLORIDE
  40. DIPHENHYDRAMINE HCL [Concomitant]
     Active Substance: DIPHENHYDRAMINE HYDROCHLORIDE
     Indication: PREMEDICATION
     Route: 048
     Dates: start: 20140304
  41. SPIRIVA [Concomitant]
     Active Substance: TIOTROPIUM BROMIDE MONOHYDRATE
  42. VITAMIN B2 [Concomitant]
     Active Substance: RIBOFLAVIN
  43. NYSTATIN. [Concomitant]
     Active Substance: NYSTATIN

REACTIONS (6)
  - Weight increased [Not Recovered/Not Resolved]
  - Granulomatosis with polyangiitis [Unknown]
  - Fatigue [Unknown]
  - Neoplasm malignant [Unknown]
  - Insomnia [Unknown]
  - Sinusitis [Unknown]
